FAERS Safety Report 23592804 (Version 1)
Quarter: 2024Q1

REPORT INFORMATION
  Report Type: Spontaneous
  Country: FR (occurrence: FR)
  Receive Date: 20240304
  Receipt Date: 20240304
  Transmission Date: 20240410
  Serious: Yes (Hospitalization)
  Sender: FDA-Public Use
  Company Number: None

PATIENT
  Age: 54 Year
  Sex: Male
  Weight: 87 kg

DRUGS (2)
  1. IOVERSOL [Suspect]
     Active Substance: IOVERSOL
     Indication: Computerised tomogram thorax
     Route: 042
     Dates: start: 20190214, end: 20190214
  2. PREDNISONE [Concomitant]
     Active Substance: PREDNISONE
     Indication: Still^s disease
     Route: 048
     Dates: start: 201901

REACTIONS (1)
  - Rash maculo-papular [Recovered/Resolved]

NARRATIVE: CASE EVENT DATE: 20190217
